FAERS Safety Report 16427756 (Version 1)
Quarter: 2019Q2

REPORT INFORMATION
  Report Type: Spontaneous
  Country: DE (occurrence: DE)
  Receive Date: 20190613
  Receipt Date: 20190613
  Transmission Date: 20190711
  Serious: Yes (Life-Threatening, Other)
  Sender: FDA-Public Use
  Company Number: DE-ASTRAZENECA-2019SE84232

PATIENT
  Age: 63 Year
  Sex: Female
  Weight: 70 kg

DRUGS (1)
  1. BRILIQUE [Suspect]
     Active Substance: TICAGRELOR
     Dosage: TWO TIMES A DAY
     Route: 048
     Dates: start: 20190308, end: 20190506

REACTIONS (3)
  - Dyspnoea [Unknown]
  - Nocturnal dyspnoea [Unknown]
  - Angina pectoris [Unknown]

NARRATIVE: CASE EVENT DATE: 20190310
